FAERS Safety Report 25593916 (Version 5)
Quarter: 2025Q3

REPORT INFORMATION
  Report Type: Spontaneous
  Country: US (occurrence: US)
  Receive Date: 20250723
  Receipt Date: 20250926
  Transmission Date: 20251020
  Serious: Yes (Other)
  Sender: ELI LILLY AND COMPANY
  Company Number: US-ELI_LILLY_AND_COMPANY-US202507012576

PATIENT
  Age: 61 Year
  Sex: Female

DRUGS (3)
  1. OLUMIANT [Suspect]
     Active Substance: BARICITINIB
     Indication: Alopecia areata
     Dosage: 2 MG, DAILY
     Route: 048
     Dates: start: 202506
  2. MOUNJARO [Suspect]
     Active Substance: TIRZEPATIDE
     Indication: Product used for unknown indication
     Route: 065
  3. MOUNJARO [Suspect]
     Active Substance: TIRZEPATIDE
     Route: 065
     Dates: start: 20250703

REACTIONS (21)
  - Fall [Unknown]
  - Cough [Unknown]
  - Sleep disorder [Unknown]
  - Anxiety [Unknown]
  - Chills [Unknown]
  - Insomnia [Unknown]
  - Alopecia [Unknown]
  - Stress [Unknown]
  - Nasal congestion [Unknown]
  - Gastrooesophageal reflux disease [Recovered/Resolved]
  - Lip swelling [Unknown]
  - Fluid retention [Unknown]
  - Dyspepsia [Recovered/Resolved]
  - Constipation [Recovered/Resolved]
  - Antinuclear antibody positive [Unknown]
  - Arthropathy [Unknown]
  - Abdominal discomfort [Recovered/Resolved]
  - Fatigue [Unknown]
  - Headache [Unknown]
  - Weight increased [Unknown]
  - Nausea [Recovered/Resolved]

NARRATIVE: CASE EVENT DATE: 20250704
